FAERS Safety Report 5027772-X (Version None)
Quarter: 2006Q2

REPORT INFORMATION
  Report Type: 
  Country: None (occurrence: None)
  Receive Date: 20060616
  Receipt Date: 20050505
  Transmission Date: 20061013
  Serious: Yes (Death, Hospitalization)
  Sender: FDA-Public Use
  Company Number: ZW-GILEAD-2005-0008316

PATIENT
  Sex: Female

DRUGS (9)
  1. TENOFOVIR DISOPROXIL FUMARATE [Suspect]
     Indication: HIV INFECTION
     Dates: start: 20050411, end: 20050422
  2. TENOFOVIR DISOPROXIL FUMARATE [Suspect]
     Route: 048
     Dates: start: 20050405, end: 20060407
  3. TENOFOVIR DISOPROXIL FUMARATE [Suspect]
     Dates: start: 20030815, end: 20050317
  4. TENOFOVIR DISOPROXIL FUMARATE [Suspect]
     Dates: start: 20030710, end: 20030807
  5. CO-TRIMOXAZOLE [Suspect]
  6. CBV [Concomitant]
     Indication: HIV INFECTION
     Dates: start: 20050411, end: 20050422
  7. CBV [Concomitant]
     Dates: start: 20050405, end: 20050407
  8. CBV [Concomitant]
     Dates: start: 20030815, end: 20050317
  9. CBV [Concomitant]
     Dates: start: 20030710, end: 20030807

REACTIONS (9)
  - CEREBRAL ISCHAEMIA [None]
  - CONFUSIONAL STATE [None]
  - DEHYDRATION [None]
  - DIARRHOEA [None]
  - GASTROENTERITIS [None]
  - HAEMATEMESIS [None]
  - MENINGITIS CRYPTOCOCCAL [None]
  - RENAL FAILURE [None]
  - UTERINE LEIOMYOMA [None]
